FAERS Safety Report 9675661 (Version 6)
Quarter: 2014Q2

REPORT INFORMATION
  Report Type: Spontaneous
  Country: US (occurrence: US)
  Receive Date: 20131107
  Receipt Date: 20140508
  Transmission Date: 20141212
  Serious: Yes (Other)
  Sender: FDA-Public Use
  Company Number: US-THROMBOGENICS INC.-JET-2013-301

PATIENT
  Age: 63 Year
  Sex: Female

DRUGS (2)
  1. JETREA [Suspect]
     Indication: VITREOUS ADHESIONS
     Dosage: 0.125 MG, ONE TIME DOSE
     Route: 031
     Dates: start: 2013, end: 2013
  2. JETREA [Suspect]
     Indication: MACULAR HOLE

REACTIONS (19)
  - Retinal injury [Not Recovered/Not Resolved]
  - Macular hole [Recovered/Resolved]
  - Disease progression [Recovered/Resolved]
  - Retinal vascular disorder [Recovered/Resolved]
  - Retinal oedema [Not Recovered/Not Resolved]
  - Photopsia [Recovering/Resolving]
  - Retinogram abnormal [Recovering/Resolving]
  - Optical coherence tomography abnormal [Not Recovered/Not Resolved]
  - Visual acuity reduced [Recovered/Resolved]
  - Vitreous floaters [Recovered/Resolved]
  - Night blindness [Not Recovered/Not Resolved]
  - Pupils unequal [Recovered/Resolved]
  - Chromatopsia [Not Recovered/Not Resolved]
  - Visual field defect [Recovering/Resolving]
  - Visual impairment [Recovering/Resolving]
  - Pupillary reflex impaired [Unknown]
  - Metamorphopsia [Not Recovered/Not Resolved]
  - Visual impairment [Unknown]
  - Vitreous floaters [Recovered/Resolved]
